FAERS Safety Report 25826813 (Version 2)
Quarter: 2025Q4

REPORT INFORMATION
  Report Type: Report from Study
  Country: US (occurrence: US)
  Receive Date: 20250920
  Receipt Date: 20251121
  Transmission Date: 20260118
  Serious: Yes (Death, Other)
  Sender: ALEXION PHARMACEUTICALS
  Company Number: US-AstraZeneca-CH-00953035A

PATIENT
  Age: 75 Year
  Sex: Male
  Weight: 54.15 kg

DRUGS (1)
  1. OLAPARIB [Suspect]
     Active Substance: OLAPARIB
     Route: 065

REACTIONS (8)
  - Death [Fatal]
  - Malignant neoplasm progression [Unknown]
  - Abdominal pain [Unknown]
  - Peripheral swelling [Unknown]
  - Dysuria [Unknown]
  - Prostatic specific antigen increased [Unknown]
  - Retroperitoneal lymphadenopathy [Unknown]
  - Haemoglobin decreased [Unknown]

NARRATIVE: CASE EVENT DATE: 20250829
